FAERS Safety Report 5141069-9 (Version None)
Quarter: 2006Q4

REPORT INFORMATION
  Report Type: 
  Country: None (occurrence: None)
  Receive Date: 20061026
  Receipt Date: 20061018
  Transmission Date: 20070319
  Serious: Yes (Other)
  Sender: FDA-Public Use
  Company Number: 2006104573

PATIENT
  Age: 40 Year
  Sex: Female
  Weight: 68 kg

DRUGS (2)
  1. ZOLOFT [Suspect]
     Dosage: 50 MG (1 IN 1 D) ORAL
     Route: 048
     Dates: start: 20060503
  2. SEDOXIL (MEXAZOLAM) [Suspect]
     Dosage: 4 MG (2 MG, FREQUENCY: BID) ORAL
     Route: 048
     Dates: start: 20060503

REACTIONS (2)
  - BLOOD ALCOHOL INCREASED [None]
  - ROAD TRAFFIC ACCIDENT [None]
